FAERS Safety Report 8120246-9 (Version None)
Quarter: 2012Q1

REPORT INFORMATION
  Report Type: 
  Country: None (occurrence: None)
  Receive Date: 20120203
  Receipt Date: 20120118
  Transmission Date: 20120608
  Serious: Yes (Other)
  Sender: FDA-Public Use
  Company Number: MC201200040

PATIENT
  Age: 60 Year
  Sex: Male
  Weight: 121.6 kg

DRUGS (13)
  1. ADENOSINE [Concomitant]
  2. ASPIRIN [Concomitant]
  3. ANGIOMAX [Suspect]
     Indication: PERCUTANEOUS CORONARY INTERVENTION
     Dosage: SEE IMAGE
     Route: 040
     Dates: start: 20120112
  4. ANGIOMAX [Suspect]
     Indication: PERCUTANEOUS CORONARY INTERVENTION
     Dosage: SEE IMAGE
     Route: 040
     Dates: start: 20120112, end: 20120112
  5. ANGIOMAX [Suspect]
     Indication: PERCUTANEOUS CORONARY INTERVENTION
     Dosage: SEE IMAGE
     Route: 040
     Dates: start: 20120112, end: 20120112
  6. ANGIOMAX [Suspect]
     Indication: PERCUTANEOUS CORONARY INTERVENTION
     Dosage: SEE IMAGE
     Route: 040
     Dates: start: 20120112, end: 20120112
  7. VERAPAMIL HYDROCHLORIDE [Concomitant]
  8. MORPHINE [Concomitant]
  9. FENTANYL [Concomitant]
  10. CLOPIDOGREL [Concomitant]
  11. LIDOCAINE (LIDOCAINE HYDROCHLORIDE) [Concomitant]
  12. NITROGLYCERIN [Concomitant]
  13. MIDAZOLAM HYDROCHLORIDE [Concomitant]

REACTIONS (3)
  - INTERNATIONAL NORMALISED RATIO DECREASED [None]
  - CORONARY ARTERY THROMBOSIS [None]
  - CORONARY ARTERY OCCLUSION [None]
